FAERS Safety Report 9153509 (Version 2)
Quarter: 2013Q1

REPORT INFORMATION
  Report Type: Spontaneous
  Country: US (occurrence: US)
  Receive Date: 20130311
  Receipt Date: 20130327
  Transmission Date: 20140127
  Serious: Yes (Hospitalization)
  Sender: FDA-Public Use
  Company Number: US-BAYER-2013-028422

PATIENT
  Age: 27 Year
  Sex: Female
  Weight: 71.2 kg

DRUGS (10)
  1. YAZ [Suspect]
     Indication: ACNE
  2. YASMIN [Suspect]
     Indication: MENSTRUAL CYCLE MANAGEMENT
  3. YASMIN [Suspect]
     Indication: ACNE
  4. OCELLA [Suspect]
     Indication: ACNE
  5. ZANAFLEX [Concomitant]
     Indication: PAIN
     Dosage: 4 MG, Q 8 HOURS PRN
  6. TORADOL [Concomitant]
  7. HYDROMORPHONE [Concomitant]
  8. FENTANYL [Concomitant]
  9. VICODIN [Concomitant]
  10. COLACE [Concomitant]

REACTIONS (4)
  - Injury [None]
  - Pulmonary embolism [Recovered/Resolved]
  - Pain [None]
  - Pain [None]
